FAERS Safety Report 6822316-1 (Version None)
Quarter: 2010Q3

REPORT INFORMATION
  Report Type: 
  Country: None (occurrence: None)
  Receive Date: 20100708
  Receipt Date: 20100701
  Transmission Date: 20110219
  Serious: Yes (Other)
  Sender: FDA-Public Use
  Company Number: IT-SHIRE-SPV1-2010-01219

PATIENT
  Sex: Female

DRUGS (1)
  1. FOSRENOL [Suspect]

REACTIONS (2)
  - GASTRIC ULCER [None]
  - HAEMATEMESIS [None]
